FAERS Safety Report 7814276-1 (Version None)
Quarter: 2011Q4

REPORT INFORMATION
  Report Type: 
  Country: None (occurrence: None)
  Receive Date: 20111014
  Receipt Date: 20111007
  Transmission Date: 20120403
  Serious: Yes (Hospitalization)
  Sender: FDA-Public Use
  Company Number: CA-SANOFI-AVENTIS-2011SA061255

PATIENT
  Age: 54 Year
  Sex: Female
  Weight: 166 kg

DRUGS (10)
  1. ALENDRONATE SODIUM [Concomitant]
     Dates: start: 20110330
  2. DOCETAXEL [Suspect]
     Indication: BREAST CANCER
     Route: 042
     Dates: start: 20110412, end: 20110412
  3. CORTICOSTEROID NOS [Concomitant]
  4. VITAMIN D [Concomitant]
     Dates: start: 20070401
  5. DOCETAXEL [Suspect]
     Route: 042
     Dates: start: 20110830, end: 20110830
  6. BIOTENE [Concomitant]
     Dates: start: 20110718
  7. REPLENS [Concomitant]
     Dates: start: 20100101
  8. BLINDED THERAPY [Suspect]
     Indication: BREAST CANCER
     Dates: start: 20110412, end: 20110830
  9. ZANTAC [Concomitant]
     Dates: start: 20110420
  10. ROBAXACET [Concomitant]
     Dates: start: 20110824

REACTIONS (2)
  - FEMORAL NECK FRACTURE [None]
  - NEUTROPENIA [None]
